FAERS Safety Report 4882730-0 (Version None)
Quarter: 2006Q1

REPORT INFORMATION
  Report Type: 
  Country: None (occurrence: None)
  Receive Date: 20060117
  Receipt Date: 20060111
  Transmission Date: 20060701
  Serious: Yes (Hospitalization)
  Sender: FDA-Public Use
  Company Number: US-MERCK-0601USA01373

PATIENT
  Age: 64 Year
  Sex: Male

DRUGS (2)
  1. COZAAR [Suspect]
     Indication: HYPERTENSION
     Route: 048
     Dates: end: 20060104
  2. HYDRODIURIL [Concomitant]
     Route: 065

REACTIONS (3)
  - PARANOIA [None]
  - PROSTATE CANCER [None]
  - PSYCHOTIC DISORDER [None]
